FAERS Safety Report 15827627 (Version 4)
Quarter: 2019Q1

REPORT INFORMATION
  Report Type: Spontaneous
  Country: GB (occurrence: GB)
  Receive Date: 20190115
  Receipt Date: 20190305
  Transmission Date: 20190417
  Serious: Yes (Hospitalization, Other)
  Sender: FDA-Public Use
  Company Number: GB-MYLANLABS-MK-6037565

PATIENT
  Age: 42 Year
  Sex: Male

DRUGS (8)
  1. SULPHAMETHOXAZOLE/TRIMETHOPRIM [Interacting]
     Active Substance: SULFAMETHOXAZOLE\TRIMETHOPRIM
     Indication: BURKHOLDERIA CEPACIA COMPLEX INFECTION
     Dosage: 2.88 GRAM, QD (1.44 G, 2X/DAY)
     Route: 042
     Dates: start: 200306
  2. COLOMYCIN                          /00013203/ [Interacting]
     Active Substance: COLISTIN SULFATE
     Indication: PSEUDOMONAS INFECTION
     Dosage: 2 MEGAUNITS TDS
     Route: 042
     Dates: start: 200306
  3. COLOMYCIN                          /00013203/ [Interacting]
     Active Substance: COLISTIN SULFATE
     Dosage: 2 MILLI-INTERNATIONAL UNIT, QD (2 MIU, TID)
     Route: 042
     Dates: start: 200306
  4. COTRIMOXAZOLE [Interacting]
     Active Substance: SULFAMETHOXAZOLE\TRIMETHOPRIM
     Indication: INFECTION
  5. DICLOFENAC [Interacting]
     Active Substance: DICLOFENAC
     Indication: NON-CARDIAC CHEST PAIN
  6. TOBRAMYCIN. [Interacting]
     Active Substance: TOBRAMYCIN
     Indication: PSEUDOMONAS INFECTION
     Dosage: 480 MILLIGRAM, QD (160 MG, 3X/DAY)
     Route: 042
     Dates: start: 200306
  7. DICLOFENAC [Suspect]
     Active Substance: DICLOFENAC
     Indication: PLEURITIC PAIN
     Dosage: UNK
     Route: 065
     Dates: start: 200306
  8. COTRIMOXAZOLE [Interacting]
     Active Substance: SULFAMETHOXAZOLE\TRIMETHOPRIM
     Indication: BURKHOLDERIA CEPACIA COMPLEX INFECTION
     Dosage: 1.44 G, 2X/DAY
     Route: 042
     Dates: start: 200306

REACTIONS (8)
  - Acute kidney injury [Unknown]
  - Drug interaction [Unknown]
  - Tinnitus [Unknown]
  - Ataxia [Unknown]
  - Blood creatinine increased [Unknown]
  - Renal impairment [Recovered/Resolved with Sequelae]
  - Dizziness [Unknown]
  - Creatinine renal clearance decreased [Unknown]

NARRATIVE: CASE EVENT DATE: 2003
